FAERS Safety Report 22293722 (Version 1)
Quarter: 2023Q2

REPORT INFORMATION
  Report Type: Spontaneous
  Country: US (occurrence: US)
  Receive Date: 20230508
  Receipt Date: 20230508
  Transmission Date: 20230722
  Serious: No
  Sender: FDA-Public Use
  Company Number: US-TEVA-2023-US-2879776

PATIENT
  Age: 40 Year
  Sex: Female

DRUGS (1)
  1. LIDOCAINE [Suspect]
     Active Substance: LIDOCAINE
     Indication: Product used for unknown indication
     Dosage: 5 %, SINCE ABOUT 20 YEARS
     Route: 062

REACTIONS (4)
  - Urticaria [Unknown]
  - Memory impairment [Unknown]
  - Pruritus [Unknown]
  - Product adhesion issue [Unknown]
